FAERS Safety Report 20610676 (Version 1)
Quarter: 2022Q1

REPORT INFORMATION
  Report Type: Spontaneous
  Country: BE (occurrence: BE)
  Receive Date: 20220318
  Receipt Date: 20220318
  Transmission Date: 20220423
  Serious: Yes (Disabling)
  Sender: FDA-Public Use
  Company Number: None

PATIENT
  Age: 44 Year
  Sex: Female
  Weight: 89.9 kg

DRUGS (4)
  1. AJOVY [Suspect]
     Active Substance: FREMANEZUMAB-VFRM
     Indication: Migraine
     Dosage: 10/08/2020 - 10/09/2020 - 10/10/2020 - 10/11/2020 - 10/12/2020 - 10/01/2021 - 10/02/2021 - 10/03/202
     Route: 058
     Dates: start: 20200810
  2. TOPAMAX [Concomitant]
     Active Substance: TOPIRAMATE
     Dosage: UNIT DOSE: 2 DF
  3. PRAMIPEXOLE [Concomitant]
     Active Substance: PRAMIPEXOLE
     Dosage: UNIT DOSE: 3 DF
  4. TRAZODONE [Concomitant]
     Active Substance: TRAZODONE HYDROCHLORIDE
     Dosage: UNIT DOSE: 0.5 DF

REACTIONS (2)
  - Arthralgia [Not Recovered/Not Resolved]
  - Weight increased [Not Recovered/Not Resolved]

NARRATIVE: CASE EVENT DATE: 20200810
